FAERS Safety Report 16426692 (Version 6)
Quarter: 2019Q4

REPORT INFORMATION
  Report Type: Report from Study
  Country: CA (occurrence: CA)
  Receive Date: 20190613
  Receipt Date: 20191001
  Transmission Date: 20200122
  Serious: Yes (Hospitalization, Other)
  Sender: FDA-Public Use
  Company Number: CA-GLAXOSMITHKLINE-CA2019GSK104273

PATIENT
  Sex: Female

DRUGS (4)
  1. MEPOLIZUMAB [Suspect]
     Active Substance: MEPOLIZUMAB
     Dosage: 100 MG, Z
     Route: 042
  2. MEPOLIZUMAB [Suspect]
     Active Substance: MEPOLIZUMAB
     Dosage: 100 UNK, UNK(MONTHLY)
     Route: 042
     Dates: start: 20160812
  3. MEPOLIZUMAB [Suspect]
     Active Substance: MEPOLIZUMAB
     Indication: ASTHMA
     Dosage: 100 MG, Z, ONCE MONTHLY
     Route: 042
     Dates: start: 20161212
  4. MEPOLIZUMAB [Suspect]
     Active Substance: MEPOLIZUMAB
     Dosage: 100 MG, Z
     Route: 042
     Dates: start: 20161212

REACTIONS (11)
  - Fall [Unknown]
  - Pain in extremity [Unknown]
  - Joint injury [Unknown]
  - Urinary tract infection [Unknown]
  - Localised infection [Unknown]
  - Peripheral swelling [Unknown]
  - Hypertrophic cardiomyopathy [Unknown]
  - Blood glucose increased [Unknown]
  - Skin laceration [Unknown]
  - Malaise [Unknown]
  - Type 2 diabetes mellitus [Unknown]
